FAERS Safety Report 8186739-3 (Version None)
Quarter: 2012Q1

REPORT INFORMATION
  Report Type: 
  Country: None (occurrence: None)
  Receive Date: 20120213
  Receipt Date: 20111121
  Transmission Date: 20120608
  Serious: No
  Sender: FDA-Public Use
  Company Number: 1000025644

PATIENT
  Age: 70 Year
  Sex: Female

DRUGS (12)
  1. PROTONIX (PANTOPRAZOLE SODIUM SESQUIHYDRATE) (PANTOPRAZOLE SODIUM SESQ [Concomitant]
  2. MULTIVITAMIN (MULTIVITAMIN) (MULTIVITAMIN) [Concomitant]
  3. VITAMIN D (VITAMIN D) (VITAMIN D) [Concomitant]
  4. VICODIN (VICODIN) (VICODIN) [Concomitant]
  5. MAGNESIUM (MAGNESIUM) (MAGNESIUM) [Concomitant]
  6. SAVELLA [Suspect]
     Indication: FIBROMYALGIA
     Dosage: SEE IMAGE
     Route: 048
     Dates: start: 20111001, end: 20111001
  7. SAVELLA [Suspect]
     Indication: FIBROMYALGIA
     Dosage: SEE IMAGE
     Route: 048
     Dates: start: 20111001, end: 20111001
  8. SAVELLA [Suspect]
     Indication: FIBROMYALGIA
     Dosage: SEE IMAGE
     Route: 048
     Dates: start: 20110101, end: 20110101
  9. SAVELLA [Suspect]
     Indication: FIBROMYALGIA
     Dosage: 50 MG BID (50 MG,2 IN 1 D),ORAL ; 50 MG QOD, ORAL
     Route: 048
     Dates: start: 20111101, end: 20111118
  10. SAVELLA [Suspect]
     Indication: FIBROMYALGIA
     Dosage: 50 MG BID (50 MG,2 IN 1 D),ORAL ; 50 MG QOD, ORAL
     Route: 048
     Dates: start: 20110101, end: 20111101
  11. PREMARIN (ESTROGENS CONJUGATED) (ESTROGENS CONJUGATED) [Concomitant]
  12. CALCIUM (CALCIUM) (CALCIUM) [Concomitant]

REACTIONS (5)
  - NAUSEA [None]
  - CONSTIPATION [None]
  - PARAESTHESIA [None]
  - HYPOAESTHESIA [None]
  - HEADACHE [None]
